FAERS Safety Report 10548254 (Version 2)
Quarter: 2014Q4

REPORT INFORMATION
  Report Type: Spontaneous
  Country: US (occurrence: US)
  Receive Date: 20141028
  Receipt Date: 20141028
  Transmission Date: 20150529
  Serious: No
  Sender: FDA-Public Use
  Company Number: US-LEO PHARMA-229661

PATIENT
  Sex: Female

DRUGS (1)
  1. PICATO [Suspect]
     Active Substance: INGENOL MEBUTATE
     Indication: ACTINIC KERATOSIS
     Dates: start: 201408

REACTIONS (4)
  - Incorrect drug administration duration [Unknown]
  - Application site vesicles [Unknown]
  - Drug administered at inappropriate site [Unknown]
  - Application site pustules [Unknown]
